FAERS Safety Report 4632507-6 (Version None)
Quarter: 2005Q2

REPORT INFORMATION
  Report Type: 
  Country: None (occurrence: None)
  Receive Date: 20050411
  Receipt Date: 20050406
  Transmission Date: 20051028
  Serious: Yes (Hospitalization)
  Sender: FDA-Public Use
  Company Number: 05-02-0216

PATIENT
  Age: 76 Year
  Sex: Female

DRUGS (4)
  1. CLOZAPINE [Suspect]
     Indication: DEMENTIA ALZHEIMER'S TYPE
     Dosage: 25-250MG QD ORAL
     Route: 048
     Dates: start: 20020901, end: 20050214
  2. LOSARTAN POTASSIUM [Concomitant]
  3. LASIX [Concomitant]
  4. PREVACID [Concomitant]

REACTIONS (2)
  - COMA [None]
  - STAPHYLOCOCCAL INFECTION [None]
